FAERS Safety Report 10745583 (Version 2)
Quarter: 2015Q2

REPORT INFORMATION
  Report Type: Spontaneous
  Country: US (occurrence: US)
  Receive Date: 20150128
  Receipt Date: 20150424
  Transmission Date: 20150821
  Serious: No
  Sender: FDA-Public Use
  Company Number: US-009507513-1501USA010984

PATIENT
  Sex: Female

DRUGS (1)
  1. NASONEX [Suspect]
     Active Substance: MOMETASONE FUROATE
     Dosage: STRENGTH: 50 (UNITS UNSPECIFIED), 1 SPRAY IN EACH NOSTRIL ONE TO TWO TIMES DAILY
     Route: 045
     Dates: start: 2012

REACTIONS (3)
  - Poor quality drug administered [Unknown]
  - Incorrect dose administered [Unknown]
  - Product odour abnormal [Unknown]

NARRATIVE: CASE EVENT DATE: 2012
